FAERS Safety Report 19685251 (Version 1)
Quarter: 2021Q3

REPORT INFORMATION
  Report Type: Other
  Country: BE (occurrence: BE)
  Receive Date: 20210811
  Receipt Date: 20210811
  Transmission Date: 20211014
  Serious: Yes (Other)
  Sender: FDA-Public Use
  Company Number: BE-ROCHE-2882515

PATIENT
  Age: 73 Year
  Sex: Female

DRUGS (22)
  1. ETOPOSIDE. [Suspect]
     Active Substance: ETOPOSIDE
     Indication: NON-SMALL CELL LUNG CANCER
     Route: 048
  2. ASAFLOW [Concomitant]
     Active Substance: ASPIRIN
  3. LAXIDO [Concomitant]
     Active Substance: POLYETHYLENE GLYCOL 3350\POTASSIUM CHLORIDE\SODIUM BICARBONATE\SODIUM CHLORIDE
  4. MEDROL [Concomitant]
     Active Substance: METHYLPREDNISOLONE
     Dates: start: 20210715
  5. MAGNETOP [Concomitant]
     Dates: start: 20210716
  6. SODIUM CHLORIDE. [Concomitant]
     Active Substance: SODIUM CHLORIDE
     Dates: start: 20210729, end: 20210730
  7. POTASSIUM CHLORIDE. [Concomitant]
     Active Substance: POTASSIUM CHLORIDE
     Dates: start: 20210729, end: 20210730
  8. CARBOPLATIN. [Suspect]
     Active Substance: CARBOPLATIN
     Indication: NON-SMALL CELL LUNG CANCER
     Route: 065
  9. LITICAN [Concomitant]
     Active Substance: ALIZAPRIDE HYDROCHLORIDE
     Dates: start: 20210717
  10. ATEZOLIZUMAB. [Suspect]
     Active Substance: ATEZOLIZUMAB
     Indication: NON-SMALL CELL LUNG CANCER
     Route: 041
  11. AKYNZEO [Concomitant]
     Active Substance: NETUPITANT\PALONOSETRON HYDROCHLORIDE
     Dates: start: 20210715
  12. CEFTAZIDIME. [Concomitant]
     Active Substance: CEFTAZIDIME
     Dates: start: 20210726, end: 20210728
  13. ULTRA K [Concomitant]
     Dates: start: 20210728
  14. TAVANIC [Concomitant]
     Active Substance: LEVOFLOXACIN
     Dates: start: 20210723, end: 20210726
  15. PLASMALYTE A [Concomitant]
     Dates: start: 20210726, end: 20210727
  16. AMOCLANE [Concomitant]
     Dates: start: 20210728
  17. BISOPROLOL [Concomitant]
     Active Substance: BISOPROLOL
  18. INUVAIR [Concomitant]
     Active Substance: BECLOMETHASONE DIPROPIONATE\FORMOTEROL FUMARATE
  19. VITAMINE D [Concomitant]
     Active Substance: CHOLECALCIFEROL
  20. PRAVASTATINE [Concomitant]
     Active Substance: PRAVASTATIN
  21. COVERSYL [Concomitant]
     Active Substance: PERINDOPRIL
  22. NEULASTA [Concomitant]
     Active Substance: PEGFILGRASTIM
     Dates: start: 20210719

REACTIONS (2)
  - Neutropenia [Recovered/Resolved]
  - Hypokalaemia [Recovering/Resolving]

NARRATIVE: CASE EVENT DATE: 20210723
